FAERS Safety Report 5486419-9 (Version None)
Quarter: 2007Q4

REPORT INFORMATION
  Report Type: 
  Country: None (occurrence: None)
  Receive Date: 20071012
  Receipt Date: 20070928
  Transmission Date: 20080405
  Serious: Yes (Other)
  Sender: FDA-Public Use
  Company Number: 2007S1009163

PATIENT
  Age: 47 Year
  Sex: Male
  Weight: 66.6788 kg

DRUGS (5)
  1. FENTANYL TRANSDERMAL SYSTEM [Suspect]
     Indication: BACK PAIN
     Dosage: 100 UG/HR; EVERY OTHER DAY; TRANSDERMAL
     Route: 062
  2. FENTANYL TRANSDERMAL SYSTEM [Suspect]
     Indication: NECK PAIN
     Dosage: 100 UG/HR; EVERY OTHER DAY; TRANSDERMAL
     Route: 062
  3. VICODIN (CON.) [Concomitant]
  4. VALIUM /0017001/ (CON.) [Concomitant]
  5. SOMA (CON.) [Concomitant]

REACTIONS (6)
  - ANURIA [None]
  - CHILLS [None]
  - DYSPNOEA [None]
  - HYPERHIDROSIS [None]
  - NERVOUSNESS [None]
  - PHARMACEUTICAL PRODUCT COMPLAINT [None]
